FAERS Safety Report 25563994 (Version 2)
Quarter: 2025Q3

REPORT INFORMATION
  Report Type: Report from Study
  Country: EU (occurrence: EU)
  Receive Date: 20250716
  Receipt Date: 20250804
  Transmission Date: 20251021
  Serious: Yes (Other)
  Sender: BIOVITRUM
  Company Number: EU-AstraZeneca-CH-00719676A

PATIENT
  Sex: Male
  Weight: 9.06 kg

DRUGS (1)
  1. SYNAGIS [Suspect]
     Active Substance: PALIVIZUMAB
     Indication: Product used for unknown indication
     Route: 030
     Dates: start: 20241003

REACTIONS (1)
  - Acquired cardiac septal defect [Not Recovered/Not Resolved]
